FAERS Safety Report 25164730 (Version 2)
Quarter: 2025Q2

REPORT INFORMATION
  Report Type: Spontaneous
  Country: US (occurrence: US)
  Receive Date: 20250406
  Receipt Date: 20250409
  Transmission Date: 20250716
  Serious: Yes (Death, Other)
  Sender: JOHNSON AND JOHNSON
  Company Number: US-JNJFOC-20250388906

PATIENT

DRUGS (1)
  1. TALVEY [Suspect]
     Active Substance: TALQUETAMAB-TGVS
     Indication: Product used for unknown indication

REACTIONS (6)
  - Disseminated intravascular coagulation [Fatal]
  - Cytokine release syndrome [Not Recovered/Not Resolved]
  - Hypothermia [Unknown]
  - Lactic acidosis [Unknown]
  - Hypotension [Unknown]
  - Mental status changes [Unknown]
